FAERS Safety Report 14617559 (Version 1)
Quarter: 2018Q1

REPORT INFORMATION
  Report Type: Spontaneous
  Country: US (occurrence: US)
  Receive Date: 20180309
  Receipt Date: 20180309
  Transmission Date: 20180509
  Serious: Yes (Disabling)
  Sender: FDA-Public Use
  Company Number: None

PATIENT
  Age: 49 Year
  Sex: Female
  Weight: 47.25 kg

DRUGS (4)
  1. CALCIUM WITH D3 [Concomitant]
  2. DAILY MULTIVITAMIN [Concomitant]
     Active Substance: VITAMINS
  3. ALENDRONATE SODIUM  TABLETS USP [Suspect]
     Active Substance: ALENDRONATE SODIUM
     Indication: OSTEOPOROSIS
     Dosage: ?          QUANTITY:4 TABLET(S);OTHER FREQUENCY:WEEKLY;?
     Route: 048
     Dates: start: 20151121, end: 20151121
  4. LEVOTHYROXIN [Concomitant]
     Active Substance: LEVOTHYROXINE

REACTIONS (3)
  - Headache [None]
  - Bone pain [None]
  - Nausea [None]

NARRATIVE: CASE EVENT DATE: 20151121
